FAERS Safety Report 6817306-9 (Version None)
Quarter: 2010Q3

REPORT INFORMATION
  Report Type: 
  Country: None (occurrence: None)
  Receive Date: 20100706
  Receipt Date: 20100630
  Transmission Date: 20110219
  Serious: Yes (Death, Hospitalization, Other)
  Sender: FDA-Public Use
  Company Number: US-BAYER-201017423BCC

PATIENT
  Age: 50 Year
  Sex: Male
  Weight: 120 kg

DRUGS (7)
  1. ASPIRIN [Suspect]
     Indication: ARTERIOSCLEROSIS
     Route: 048
     Dates: start: 20050901
  2. PLAVIX [Suspect]
     Indication: ARTERIOSCLEROSIS
     Route: 048
     Dates: start: 20050901
  3. COUMADIN [Concomitant]
     Route: 065
  4. COREG [Concomitant]
     Route: 065
  5. ALTACE [Concomitant]
     Route: 065
  6. FAMOTIDINE [Concomitant]
     Route: 065
  7. NIASPAN [Concomitant]
     Route: 065

REACTIONS (4)
  - ARTERIOSCLEROSIS CORONARY ARTERY [None]
  - INFLUENZA LIKE ILLNESS [None]
  - INTERNATIONAL NORMALISED RATIO INCREASED [None]
  - THROMBOTIC THROMBOCYTOPENIC PURPURA [None]
